FAERS Safety Report 9472893 (Version 1)
Quarter: 2013Q3

REPORT INFORMATION
  Report Type: Report from Study
  Country: US (occurrence: US)
  Receive Date: 20130823
  Receipt Date: 20130823
  Transmission Date: 20140515
  Serious: Yes (Hospitalization)
  Sender: FDA-Public Use
  Company Number: US-ABBOTT-13P-163-1133512-00

PATIENT
  Age: 61 Year
  Sex: Female
  Weight: 45.4 kg

DRUGS (2)
  1. HUMIRA [Suspect]
     Indication: PSORIASIS
     Route: 058
     Dates: start: 2011, end: 201205
  2. HUMIRA [Suspect]
     Route: 058

REACTIONS (4)
  - Volvulus [Recovered/Resolved]
  - Gastrointestinal disorder [Recovered/Resolved]
  - Adhesion [Unknown]
  - Influenza [Unknown]
